FAERS Safety Report 22246741 (Version 1)
Quarter: 2023Q2

REPORT INFORMATION
  Report Type: Spontaneous
  Country: CA (occurrence: CA)
  Receive Date: 20230424
  Receipt Date: 20230424
  Transmission Date: 20230722
  Serious: Yes (Death, Other)
  Sender: FDA-Public Use
  Company Number: CA-PFIZER INC-202300165242

PATIENT
  Age: 29 Year
  Sex: Female

DRUGS (4)
  1. TRIAZOLAM [Interacting]
     Active Substance: TRIAZOLAM
     Dosage: UNK
  2. DIPHENHYDRAMINE [Interacting]
     Active Substance: DIPHENHYDRAMINE
     Dosage: UNK
  3. MAPROTILINE [Interacting]
     Active Substance: MAPROTILINE
     Dosage: UNK
  4. PHENIRAMINE [Interacting]
     Active Substance: PHENIRAMINE
     Dosage: UNK

REACTIONS (3)
  - Completed suicide [Fatal]
  - Drug interaction [Fatal]
  - Toxicity to various agents [Fatal]
